FAERS Safety Report 5273797-9 (Version None)
Quarter: 2007Q1

REPORT INFORMATION
  Report Type: 
  Country: None (occurrence: None)
  Receive Date: 20070323
  Receipt Date: 20070309
  Transmission Date: 20070707
  Serious: Yes (Life-Threatening, Hospitalization)
  Sender: FDA-Public Use
  Company Number: US-AMGEN-US213002

PATIENT
  Age: 50 Year
  Sex: Male

DRUGS (12)
  1. PANITUMUMAB [Suspect]
     Route: 042
     Dates: start: 20061220, end: 20070131
  2. CARBOPLATIN [Suspect]
     Route: 065
  3. TAXOL [Suspect]
     Route: 065
  4. ATIVAN [Concomitant]
     Route: 065
     Dates: start: 20070130
  5. COMPAZINE [Concomitant]
     Route: 065
     Dates: start: 20070213
  6. SENNA [Concomitant]
     Route: 065
     Dates: start: 20061226
  7. LIDOCAINE [Concomitant]
     Route: 065
     Dates: start: 20070226
  8. MAALOX FAST BLOCKER [Concomitant]
     Route: 065
     Dates: start: 20070225
  9. BENADRYL [Concomitant]
     Route: 065
     Dates: start: 20070226
  10. OXYCODONE [Concomitant]
     Route: 065
     Dates: start: 20070109
  11. DURAGESIC-100 [Concomitant]
     Route: 065
     Dates: start: 20070213
  12. BACITRACIN [Concomitant]
     Route: 061
     Dates: start: 20070213

REACTIONS (3)
  - DEEP VEIN THROMBOSIS [None]
  - EMBOLIC STROKE [None]
  - MULTI-ORGAN FAILURE [None]
